FAERS Safety Report 9895623 (Version 1)
Quarter: 2014Q1

REPORT INFORMATION
  Report Type: Spontaneous
  Country: US (occurrence: US)
  Receive Date: 20140213
  Receipt Date: 20140213
  Transmission Date: 20141002
  Serious: No
  Sender: FDA-Public Use
  Company Number: US-BRISTOL-MYERS SQUIBB COMPANY-17388331

PATIENT
  Age: 60 Year
  Sex: Female
  Weight: 70.29 kg

DRUGS (9)
  1. ABATACEPT SUBQ INJECTION 125MG/ML [Suspect]
     Route: 058
  2. CYMBALTA [Concomitant]
     Dosage: CAP
  3. LEVOTHYROXIN [Concomitant]
     Dosage: TAB
  4. METHOTREXATE [Concomitant]
     Dosage: TAB
  5. PLAQUENIL [Concomitant]
     Dosage: TAB
  6. CALCIUM + MAGNESIUM + ZINC [Concomitant]
     Dosage: ZINC TAB
  7. MULTIVITAMIN [Concomitant]
     Dosage: CAP
  8. OMEGA-3 [Concomitant]
     Dosage: CAP
  9. TRAMADOL HCL [Concomitant]
     Dosage: TAB

REACTIONS (1)
  - Drug ineffective [Unknown]
